FAERS Safety Report 6394078-6 (Version None)
Quarter: 2009Q4

REPORT INFORMATION
  Report Type: 
  Country: None (occurrence: None)
  Receive Date: 20091008
  Receipt Date: 20090928
  Transmission Date: 20100525
  Serious: Yes (Hospitalization)
  Sender: FDA-Public Use
  Company Number: FR-PFIZER INC-2009274488

PATIENT
  Age: 57 Year

DRUGS (6)
  1. ALDACTONE [Suspect]
     Indication: ASCITES
     Dosage: 50 MG, 2X/DAY
     Route: 048
     Dates: start: 20090202, end: 20090810
  2. FLAGYL [Suspect]
     Indication: PROPHYLAXIS AGAINST DIARRHOEA
     Dosage: 500 MG, 3X/DAY
     Route: 048
     Dates: start: 20090205, end: 20090208
  3. INIPOMP [Suspect]
     Dosage: 40 MG, 1X/DAY
     Route: 048
     Dates: start: 20090205, end: 20090208
  4. NOROXIN [Suspect]
     Dosage: 400 MG, 2X/DAY
     Route: 048
     Dates: start: 20090202, end: 20090208
  5. LASILIX [Suspect]
     Indication: OEDEMA
     Dosage: 20 MG, 2X/DAY
     Route: 048
     Dates: start: 20090204, end: 20090210
  6. PROPRANOLOL HCL [Suspect]
     Indication: VARICES OESOPHAGEAL
     Dosage: 160 MG, 1X/DAY
     Route: 048

REACTIONS (1)
  - LEUKOPENIA [None]
